FAERS Safety Report 16885544 (Version 1)
Quarter: 2019Q4

REPORT INFORMATION
  Report Type: Spontaneous
  Country: US (occurrence: US)
  Receive Date: 20191004
  Receipt Date: 20191004
  Transmission Date: 20200122
  Serious: Yes (Hospitalization, Disabling)
  Sender: FDA-Public Use
  Company Number: US-JNJFOC-20190936276

PATIENT
  Age: 65 Year
  Sex: Male

DRUGS (1)
  1. INVOKANA [Suspect]
     Active Substance: CANAGLIFLOZIN
     Indication: PRODUCT USED FOR UNKNOWN INDICATION
     Route: 048

REACTIONS (6)
  - Osteomyelitis [Unknown]
  - Neuropathic arthropathy [Unknown]
  - Leg amputation [Unknown]
  - Diabetic foot infection [Recovering/Resolving]
  - Arthritis bacterial [Unknown]
  - Haemorrhage [Unknown]

NARRATIVE: CASE EVENT DATE: 201603
